FAERS Safety Report 25041078 (Version 1)
Quarter: 2025Q1

REPORT INFORMATION
  Report Type: Report from Study
  Country: US (occurrence: US)
  Receive Date: 20250305
  Receipt Date: 20250305
  Transmission Date: 20250408
  Serious: Yes (Other)
  Sender: BAYER HEALTHCARE PHARMACEUTICALS INC.
  Company Number: US-BAYER-2025A026152

PATIENT
  Age: 60 Year
  Sex: Male

DRUGS (2)
  1. NUBEQA [Suspect]
     Active Substance: DAROLUTAMIDE
     Indication: Prostate cancer
     Dosage: 300 MG, BID
     Route: 048
     Dates: start: 202502
  2. ROSUVASTATIN [Suspect]
     Active Substance: ROSUVASTATIN

REACTIONS (8)
  - Rhabdomyolysis [None]
  - Nasal congestion [Unknown]
  - Cough [Unknown]
  - Arthralgia [Unknown]
  - Myalgia [None]
  - Drug interaction [None]
  - Toxicity to various agents [None]
  - Incorrect dose administered [None]

NARRATIVE: CASE EVENT DATE: 20250201
